FAERS Safety Report 4940693-3 (Version None)
Quarter: 2006Q1

REPORT INFORMATION
  Report Type: 
  Country: None (occurrence: None)
  Receive Date: 20060313
  Receipt Date: 20060303
  Transmission Date: 20060701
  Serious: Yes (Hospitalization)
  Sender: FDA-Public Use
  Company Number: FR-RB-2884-2006

PATIENT
  Sex: Male
  Weight: 2.1 kg

DRUGS (3)
  1. BUPRENORPHINE HCL [Suspect]
     Indication: ELECTROLYTE SUBSTITUTION THERAPY
     Route: 064
  2. BUPRENORPHINE HCL [Suspect]
     Route: 064
     Dates: end: 20010823
  3. DOSULEPIN HYDROCHLORIDE [Concomitant]
     Indication: DRUG USE FOR UNKNOWN INDICATION
     Route: 065
     Dates: end: 20010823

REACTIONS (6)
  - COMA [None]
  - CONVULSION NEONATAL [None]
  - DRUG WITHDRAWAL SYNDROME NEONATAL [None]
  - GROWTH RETARDATION [None]
  - HYPOTONIA NEONATAL [None]
  - TREMOR NEONATAL [None]
